FAERS Safety Report 17025820 (Version 1)
Quarter: 2019Q4

REPORT INFORMATION
  Report Type: Report from Study
  Country: US (occurrence: US)
  Receive Date: 20191113
  Receipt Date: 20191113
  Transmission Date: 20200122
  Serious: Yes (Disabling)
  Sender: FDA-Public Use
  Company Number: US-TAKEDA-2017TUS015419

PATIENT
  Age: 29 Year
  Sex: Female

DRUGS (3)
  1. VEDOLIZUMAB [Suspect]
     Active Substance: VEDOLIZUMAB
     Indication: COLITIS ULCERATIVE
     Dosage: 300 MILLIGRAM
     Route: 042
     Dates: start: 20170105
  2. 6-MP [Concomitant]
     Active Substance: MERCAPTOPURINE
     Indication: COLITIS ULCERATIVE
     Dosage: 37.5 MILLIGRAM, QD
     Dates: start: 201401, end: 201706
  3. PREDNISONE. [Concomitant]
     Active Substance: PREDNISONE
     Dosage: UNK
     Route: 048

REACTIONS (8)
  - Acne [Unknown]
  - Tremor [Unknown]
  - Dyspnoea [Unknown]
  - Malaise [Unknown]
  - Speech disorder [Unknown]
  - Disability [Unknown]
  - Gait inability [Unknown]
  - Visual impairment [Unknown]

NARRATIVE: CASE EVENT DATE: 201706
